FAERS Safety Report 16197964 (Version 1)
Quarter: 2019Q2

REPORT INFORMATION
  Report Type: Spontaneous
  Country: US (occurrence: US)
  Receive Date: 20190312
  Receipt Date: 20190312
  Transmission Date: 20190711
  Serious: No
  Sender: FDA-Public Use
  Company Number: None

PATIENT
  Sex: Female

DRUGS (2)
  1. WHISPERJECT AUTOINJECTOR 40MG/ML NONE [Suspect]
     Active Substance: DEVICE
     Indication: MULTIPLE SCLEROSIS
     Route: 058
     Dates: start: 201902
  2. GLATIRAMER ACETATE. [Suspect]
     Active Substance: GLATIRAMER ACETATE

REACTIONS (1)
  - Injection site pain [None]
